FAERS Safety Report 5974876-0 (Version None)
Quarter: 2008Q4

REPORT INFORMATION
  Report Type: 
  Country: None (occurrence: None)
  Receive Date: 20081202
  Receipt Date: 20081126
  Transmission Date: 20090506
  Serious: Yes (Life-Threatening, Hospitalization)
  Sender: FDA-Public Use
  Company Number: JP-PFIZER INC-2008096347

PATIENT
  Sex: Female

DRUGS (12)
  1. EPLERENONE [Suspect]
     Indication: HYPERTENSION
     Route: 048
     Dates: start: 20081003, end: 20081110
  2. NORPACE CR CAPSULE, PROLONGED RELEASE [Suspect]
     Indication: ATRIAL FIBRILLATION
     Route: 048
     Dates: start: 20081024, end: 20081110
  3. DIOVANE [Suspect]
     Indication: HYPERTENSION
     Route: 048
     Dates: start: 20081003, end: 20081110
  4. URINORM [Concomitant]
     Route: 048
     Dates: start: 20070718
  5. URALYT [Concomitant]
     Route: 048
     Dates: start: 20070718
  6. FAMOTIDINE [Concomitant]
     Route: 048
     Dates: start: 20070718
  7. AMLODIN [Concomitant]
     Route: 048
     Dates: start: 20070718
  8. DANTRIUM [Concomitant]
     Route: 048
     Dates: start: 20070718
  9. COROHERSER [Concomitant]
     Route: 048
     Dates: start: 20070718
  10. TRYPTANOL [Concomitant]
     Route: 048
     Dates: start: 20070718
  11. BUFFERIN [Concomitant]
     Route: 048
     Dates: start: 20080310
  12. MAGNESIUM OXIDE [Concomitant]
     Route: 048
     Dates: start: 20070718

REACTIONS (2)
  - BRADYCARDIA [None]
  - HYPERKALAEMIA [None]
